FAERS Safety Report 19248606 (Version 1)
Quarter: 2021Q2

REPORT INFORMATION
  Report Type: Spontaneous
  Country: US (occurrence: US)
  Receive Date: 20210512
  Receipt Date: 20210512
  Transmission Date: 20210717
  Serious: No
  Sender: FDA-Public Use
  Company Number: US-AMGEN-USASP2021070338

PATIENT

DRUGS (1)
  1. BLINCYTO [Suspect]
     Active Substance: BLINATUMOMAB
     Indication: PRODUCT USED FOR UNKNOWN INDICATION
     Dosage: 56 MCG IN 250 ML OF SOLUTION
     Route: 065
     Dates: end: 20210409

REACTIONS (2)
  - Confusional state [Unknown]
  - Gait disturbance [Unknown]

NARRATIVE: CASE EVENT DATE: 20210409
